FAERS Safety Report 7018620-7 (Version None)
Quarter: 2010Q3

REPORT INFORMATION
  Report Type: 
  Country: None (occurrence: None)
  Receive Date: 20100928
  Receipt Date: 20100921
  Transmission Date: 20110219
  Serious: Yes (Other)
  Sender: FDA-Public Use
  Company Number: CA-ABBOTT-10P-028-0672180-00

PATIENT
  Sex: Female
  Weight: 95.34 kg

DRUGS (7)
  1. HUMIRA [Suspect]
     Indication: CROHN'S DISEASE
     Route: 058
     Dates: start: 20100514
  2. CALCIUM [Concomitant]
     Indication: MINERAL SUPPLEMENTATION
     Dates: start: 19950101
  3. CHOLESTYRAMINE [Concomitant]
     Indication: PRODUCT USED FOR UNKNOWN INDICATION
     Dosage: 1 POUCH EVERY MORNING
     Route: 048
     Dates: start: 19980101
  4. VIT D [Concomitant]
     Indication: VITAMIN SUPPLEMENTATION
     Dates: start: 20000101
  5. VIT D [Concomitant]
     Route: 048
     Dates: start: 20100801
  6. VIT B12 [Concomitant]
     Indication: VITAMIN SUPPLEMENTATION
     Route: 030
     Dates: start: 19980101
  7. NEXIUM [Concomitant]
     Indication: GASTRIC DISORDER
     Route: 048
     Dates: start: 20060101

REACTIONS (6)
  - ELECTROCARDIOGRAM ABNORMAL [None]
  - FATIGUE [None]
  - HEADACHE [None]
  - LUNG DISORDER [None]
  - NAUSEA [None]
  - THROAT IRRITATION [None]
